FAERS Safety Report 12668097 (Version 3)
Quarter: 2016Q4

REPORT INFORMATION
  Report Type: Spontaneous
  Country: JP (occurrence: JP)
  Receive Date: 20160819
  Receipt Date: 20161102
  Transmission Date: 20170207
  Serious: Yes (Life-Threatening, Hospitalization)
  Sender: FDA-Public Use
  Company Number: JP-ABBVIE-15K-087-1493094-00

PATIENT
  Age: 44 Year
  Sex: Male
  Weight: 54 kg

DRUGS (8)
  1. INFLIXIMAB [Concomitant]
     Active Substance: INFLIXIMAB
     Indication: CROHN^S DISEASE
     Dates: start: 20050621
  2. DAIKENCHUTO [Concomitant]
     Active Substance: HERBALS
     Indication: DYSCHEZIA
     Route: 048
  3. MESALAZINE [Concomitant]
     Active Substance: MESALAMINE
     Dates: start: 20151002
  4. MESALAZINE [Concomitant]
     Active Substance: MESALAMINE
  5. MESALAZINE [Concomitant]
     Active Substance: MESALAMINE
     Indication: PRODUCT USED FOR UNKNOWN INDICATION
     Route: 048
     Dates: end: 20151001
  6. ESOMEPRAZOLE [Concomitant]
     Active Substance: ESOMEPRAZOLE
     Indication: PRODUCT USED FOR UNKNOWN INDICATION
     Route: 048
     Dates: start: 20140903, end: 20151002
  7. HUMIRA [Suspect]
     Active Substance: ADALIMUMAB
     Indication: CROHN^S DISEASE
     Route: 058
     Dates: start: 20120607, end: 20151030
  8. ELENTAL [Concomitant]
     Active Substance: AMINO ACIDS\CARBOHYDRATES\MINERALS\SOYBEAN OIL\VITAMINS
     Indication: PRODUCT USED FOR UNKNOWN INDICATION
     Route: 048

REACTIONS (7)
  - Leukopenia [Unknown]
  - Streptococcus test positive [Unknown]
  - Haematochezia [Unknown]
  - Acute myeloid leukaemia [Recovering/Resolving]
  - Escherichia test positive [Unknown]
  - Abdominal pain [Unknown]
  - Graft versus host disease in gastrointestinal tract [Unknown]

NARRATIVE: CASE EVENT DATE: 20151016
